FAERS Safety Report 19369829 (Version 2)
Quarter: 2021Q2

REPORT INFORMATION
  Report Type: Spontaneous
  Country: SE (occurrence: SE)
  Receive Date: 20210603
  Receipt Date: 20210614
  Transmission Date: 20210717
  Serious: Yes (Other)
  Sender: FDA-Public Use
  Company Number: SE-PFM-2021-05527

PATIENT

DRUGS (4)
  1. RIFAXIMIN. [Concomitant]
     Active Substance: RIFAXIMIN
     Indication: HEPATIC ENCEPHALOPATHY
     Dosage: UNK
     Route: 065
  2. PROPRANOLOL [Suspect]
     Active Substance: PROPRANOLOL HYDROCHLORIDE
     Indication: OFF LABEL USE
  3. LACTULOSE. [Concomitant]
     Active Substance: LACTULOSE
     Indication: HEPATIC ENCEPHALOPATHY
     Dosage: UNK
     Route: 065
  4. PROPRANOLOL [Suspect]
     Active Substance: PROPRANOLOL HYDROCHLORIDE
     Indication: HAEMORRHAGE
     Dosage: 10 MG, BID (2/DAY)
     Route: 065

REACTIONS (6)
  - Cerebral atrophy [Unknown]
  - Product use issue [Unknown]
  - Hallucination, auditory [Unknown]
  - Off label use [Unknown]
  - Hallucination, visual [Unknown]
  - Product use in unapproved indication [Unknown]
